FAERS Safety Report 9782062 (Version 3)
Quarter: 2015Q1

REPORT INFORMATION
  Report Type: Report from Study
  Country: US (occurrence: US)
  Receive Date: 20131226
  Receipt Date: 20150327
  Transmission Date: 20150721
  Serious: Yes (Death)
  Sender: FDA-Public Use
  Company Number: US-ROCHE-1325051

PATIENT
  Age: 49 Year
  Sex: Male
  Weight: 76.73 kg

DRUGS (49)
  1. SODIUM CHLORIDE. [Concomitant]
     Active Substance: SODIUM CHLORIDE
     Route: 042
  2. DECADRON [Concomitant]
     Active Substance: DEXAMETHASONE
     Dosage: 10-20MG
     Route: 042
  3. BENADRYL [Concomitant]
     Active Substance: DIPHENHYDRAMINE HYDROCHLORIDE
     Route: 042
  4. EMEND [Concomitant]
     Active Substance: APREPITANT
     Route: 042
  5. ZANTAC [Concomitant]
     Active Substance: RANITIDINE HYDROCHLORIDE
     Route: 042
  6. DURAGESIC [Concomitant]
     Active Substance: FENTANYL
     Route: 062
  7. MEGACE ES [Concomitant]
     Active Substance: MEGESTROL ACETATE
     Dosage: 625/5 ML
     Route: 048
  8. LORAZEPAM. [Concomitant]
     Active Substance: LORAZEPAM
     Dosage: EVERY 6 HOURS AS NEEDED
     Route: 048
  9. ELOXATIN [Concomitant]
     Active Substance: OXALIPLATIN
     Route: 042
  10. TYLENOL [Concomitant]
     Active Substance: ACETAMINOPHEN
     Route: 048
  11. FIORINAL WITH CODEINE [Concomitant]
     Active Substance: ASPIRIN\BUTALBITAL\CAFFEINE\CODEINE PHOSPHATE
     Route: 065
  12. FENTANYL CITRATE. [Concomitant]
     Active Substance: FENTANYL CITRATE
     Route: 062
  13. OXALIPLATIN. [Concomitant]
     Active Substance: OXALIPLATIN
     Route: 065
  14. ASPIRIN/BUTALBITAL/CAFFEINE/CODEINE PHOSPHATE [Concomitant]
  15. AVASTIN [Suspect]
     Active Substance: BEVACIZUMAB
     Dosage: 14/DEC/2011, 28/DEC/2011, 11/JAN/2012, 27/JAN/2012,
     Route: 042
  16. AVASTIN [Suspect]
     Active Substance: BEVACIZUMAB
     Dosage: 10/FEB/2012, 22/FEB/2012.
     Route: 042
  17. AVASTIN [Suspect]
     Active Substance: BEVACIZUMAB
     Dosage: 28/NOV/2011, 30/MAR/2012, 11/APR/2012, 25/APR/2012, 08/MAY/2012, 04/JUN/2012, 18/JUN/2012.
     Route: 042
  18. HYDROCORTISONE. [Concomitant]
     Active Substance: HYDROCORTISONE
     Dosage: 2 TABLETS IN THE AM AND 1 TABLET IN THE PM
     Route: 048
  19. SERTRALINE [Concomitant]
     Active Substance: SERTRALINE HYDROCHLORIDE
     Route: 048
  20. HYDROCODONE TARTRATE/PARACETAMOL [Concomitant]
     Dosage: 6-8 PER DAY WHEN REQUIRED
     Route: 065
  21. AVASTIN [Suspect]
     Active Substance: BEVACIZUMAB
     Indication: COLON CANCER METASTATIC
     Route: 042
     Dates: start: 20111114
  22. BENADRYL [Concomitant]
     Active Substance: DIPHENHYDRAMINE HYDROCHLORIDE
     Route: 042
  23. DILAUDID [Concomitant]
     Active Substance: HYDROMORPHONE HYDROCHLORIDE
     Indication: PAIN
     Dosage: 2 TO 3 EVERY 3 TO 4 HOURS AS NEEDED
     Route: 042
  24. ZOLOFT [Concomitant]
     Active Substance: SERTRALINE HYDROCHLORIDE
     Route: 048
  25. MS CONTIN [Concomitant]
     Active Substance: MORPHINE SULFATE
     Dosage: EVERY 6 HOURS AS NEEDED
     Route: 048
  26. VALPROATE SEMISODIUM [Concomitant]
     Active Substance: DIVALPROEX SODIUM
     Route: 048
  27. QUETIAPINE FUMARATE. [Concomitant]
     Active Substance: QUETIAPINE FUMARATE
     Route: 048
  28. XELODA [Suspect]
     Active Substance: CAPECITABINE
     Indication: COLON CANCER METASTATIC
     Dosage: FOR 9 DAYS AND OFF FOR 5 DAYS
     Route: 048
     Dates: start: 20111114
  29. ATIVAN [Concomitant]
     Active Substance: LORAZEPAM
     Route: 042
  30. FAMOTIDINE. [Concomitant]
     Active Substance: FAMOTIDINE
     Route: 042
  31. MAGNESIUM SULFATE. [Concomitant]
     Active Substance: MAGNESIUM SULFATE
     Route: 065
  32. CALCIUM GLUCONATE. [Concomitant]
     Active Substance: CALCIUM GLUCONATE
     Route: 065
  33. AVASTIN [Suspect]
     Active Substance: BEVACIZUMAB
     Dosage: 16/MAR/2012
     Route: 042
  34. CAMPTOSAR [Concomitant]
     Active Substance: IRINOTECAN HYDROCHLORIDE
     Route: 042
  35. SEROQUEL [Concomitant]
     Active Substance: QUETIAPINE FUMARATE
     Route: 048
  36. AMOXICILLIN. [Concomitant]
     Active Substance: AMOXICILLIN
  37. ALOXI [Concomitant]
     Active Substance: PALONOSETRON HYDROCHLORIDE
     Route: 042
  38. ZANTAC [Concomitant]
     Active Substance: RANITIDINE HYDROCHLORIDE
     Route: 042
  39. DEPAKOTE [Concomitant]
     Active Substance: DIVALPROEX SODIUM
     Route: 048
  40. DILAUDID [Concomitant]
     Active Substance: HYDROMORPHONE HYDROCHLORIDE
     Indication: PAIN
     Route: 042
  41. DILAUDID [Concomitant]
     Active Substance: HYDROMORPHONE HYDROCHLORIDE
     Dosage: 2 TO 3 EVERY 3 TO 4 HOURS AS NEEDED
     Route: 048
  42. CAMPTOSAR [Concomitant]
     Active Substance: IRINOTECAN HYDROCHLORIDE
     Route: 042
  43. DURAGESIC [Concomitant]
     Active Substance: FENTANYL
     Route: 062
  44. VICODIN [Concomitant]
     Active Substance: ACETAMINOPHEN\HYDROCODONE BITARTRATE
     Dosage: 5/500MG, 1 TO 2 EVERY 6 HOURS AS NEEDED
     Route: 048
  45. ELOXATIN [Concomitant]
     Active Substance: OXALIPLATIN
     Route: 042
  46. ZOFRAN [Concomitant]
     Active Substance: ONDANSETRON HYDROCHLORIDE
     Route: 065
  47. SAL-TROPINE [Concomitant]
     Route: 042
  48. DILAUDID [Concomitant]
     Active Substance: HYDROMORPHONE HYDROCHLORIDE
     Dosage: 2 TO 3 EVERY 3 TO 4 HOURS AS NEEDED
     Route: 048
  49. MORPHINE [Concomitant]
     Active Substance: MORPHINE
     Route: 042

REACTIONS (30)
  - Death [Fatal]
  - Cough [Unknown]
  - Asthenia [Unknown]
  - Joint swelling [Unknown]
  - Disease progression [Unknown]
  - Palmar-plantar erythrodysaesthesia syndrome [Unknown]
  - Decreased appetite [Unknown]
  - Dehydration [Unknown]
  - Scrotal pain [Unknown]
  - Temperature intolerance [Unknown]
  - Tachycardia [Unknown]
  - Pyrexia [Unknown]
  - Flank pain [Unknown]
  - Testicular pain [Unknown]
  - Pain of skin [Unknown]
  - Chest discomfort [Unknown]
  - Diarrhoea [Unknown]
  - Back pain [Unknown]
  - Abdominal pain lower [Unknown]
  - Abdominal pain [Unknown]
  - Breath sounds abnormal [Unknown]
  - Neuropathy peripheral [Unknown]
  - Pain [Unknown]
  - Nausea [Unknown]
  - Pulmonary congestion [Unknown]
  - Spinal pain [Unknown]
  - Fatigue [Unknown]
  - Mucosal inflammation [Unknown]
  - Weight decreased [Unknown]
  - Abdominal distension [Unknown]

NARRATIVE: CASE EVENT DATE: 20120127
